FAERS Safety Report 6417573-X (Version None)
Quarter: 2009Q4

REPORT INFORMATION
  Report Type: 
  Country: None (occurrence: None)
  Receive Date: 20091028
  Receipt Date: 20091016
  Transmission Date: 20100525
  Serious: Yes (Other)
  Sender: FDA-Public Use
  Company Number: SG-ROCHE-663314

PATIENT
  Age: 4 Year
  Sex: Male

DRUGS (4)
  1. TAMIFLU [Suspect]
     Indication: DRUG USE FOR UNKNOWN INDICATION
     Route: 048
  2. BROMHEXINE [Concomitant]
  3. PARACETAMOL [Concomitant]
  4. PROMETHAZINE [Concomitant]

REACTIONS (1)
  - TOOTH DISCOLOURATION [None]
